FAERS Safety Report 12244934 (Version 2)
Quarter: 2016Q2

REPORT INFORMATION
  Report Type: Report from Study
  Country: AU (occurrence: AU)
  Receive Date: 20160407
  Receipt Date: 20160620
  Transmission Date: 20160815
  Serious: Yes (Other)
  Sender: FDA-Public Use
  Company Number: PHHY2015AU068404

PATIENT
  Sex: Female

DRUGS (4)
  1. SANDOSTATIN LAR DEPOT [Suspect]
     Active Substance: OCTREOTIDE ACETATE
     Dosage: 30 MG, UNK
     Route: 030
  2. SANDOSTATIN LAR DEPOT [Suspect]
     Active Substance: OCTREOTIDE ACETATE
     Indication: CARCINOID SYNDROME
     Dosage: 20 MG, UNK
     Route: 030
  3. SANDOSTATIN LAR DEPOT [Suspect]
     Active Substance: OCTREOTIDE ACETATE
     Dosage: 20 MG, UNK
     Route: 030
  4. SANDOSTATIN LAR DEPOT [Suspect]
     Active Substance: OCTREOTIDE ACETATE
     Dosage: 30 MG, UNK
     Route: 030

REACTIONS (17)
  - Diarrhoea [Not Recovered/Not Resolved]
  - Hepatic lesion [Not Recovered/Not Resolved]
  - Abdominal pain [Not Recovered/Not Resolved]
  - Back pain [Not Recovered/Not Resolved]
  - Fatigue [Not Recovered/Not Resolved]
  - Injection site mass [Unknown]
  - Chest discomfort [Unknown]
  - Malaise [Not Recovered/Not Resolved]
  - Bone lesion [Not Recovered/Not Resolved]
  - Chest pain [Not Recovered/Not Resolved]
  - Lethargy [Not Recovered/Not Resolved]
  - Fall [Not Recovered/Not Resolved]
  - Nausea [Not Recovered/Not Resolved]
  - Therapeutic response unexpected [Unknown]
  - General physical health deterioration [Not Recovered/Not Resolved]
  - Injection site pain [Unknown]
  - Asthenia [Not Recovered/Not Resolved]
